FAERS Safety Report 13279950 (Version 1)
Quarter: 2017Q1

REPORT INFORMATION
  Report Type: Spontaneous
  Country: US (occurrence: US)
  Receive Date: 20170228
  Receipt Date: 20170228
  Transmission Date: 20170428
  Serious: Yes (Other)
  Sender: FDA-Public Use
  Company Number: None

PATIENT
  Age: 5 Year
  Sex: Female
  Weight: 20.25 kg

DRUGS (1)
  1. MIRALAX [Suspect]
     Active Substance: POLYETHYLENE GLYCOL 3350
     Indication: ABDOMINAL DISCOMFORT
     Route: 048
     Dates: start: 20120101, end: 20140401

REACTIONS (6)
  - Skin odour abnormal [None]
  - Hyperhidrosis [None]
  - Anger [None]
  - Irritability [None]
  - Screaming [None]
  - Anxiety [None]

NARRATIVE: CASE EVENT DATE: 20150601
